FAERS Safety Report 9587546 (Version 3)
Quarter: 2013Q4

REPORT INFORMATION
  Report Type: Spontaneous
  Country: IT (occurrence: IT)
  Receive Date: 20131003
  Receipt Date: 20131119
  Transmission Date: 20140711
  Serious: Yes (Hospitalization)
  Sender: FDA-Public Use
  Company Number: IT-PFIZER INC-2013282982

PATIENT
  Age: 67 Year
  Sex: Female

DRUGS (4)
  1. XANAX [Suspect]
     Indication: ANXIETY
     Dosage: 0.5 MG, UNK
     Route: 048
  2. XANAX [Suspect]
     Dosage: 17 DF, TOTAL DOSE
     Route: 048
     Dates: start: 20130824, end: 20130824
  3. TAREG [Suspect]
     Indication: HYPERTENSION
     Dosage: 160 MG, UNK
     Route: 048
  4. TAREG [Suspect]
     Dosage: 12 DF, TOTAL DOSE
     Route: 048
     Dates: start: 20130824, end: 20130824

REACTIONS (4)
  - Loss of consciousness [Recovering/Resolving]
  - Sopor [Recovering/Resolving]
  - Intentional self-injury [Recovering/Resolving]
  - Drug abuse [Recovering/Resolving]
